FAERS Safety Report 7268480-4 (Version None)
Quarter: 2011Q1

REPORT INFORMATION
  Report Type: 
  Country: None (occurrence: None)
  Receive Date: 20110201
  Receipt Date: 20110120
  Transmission Date: 20110831
  Serious: Yes (Other)
  Sender: FDA-Public Use
  Company Number: US-BAYER-2011-007486

PATIENT
  Sex: Female
  Weight: 122 kg

DRUGS (2)
  1. ASPIRIN [Suspect]
     Indication: ARTHRALGIA
     Route: 048
  2. ALEVE (CAPLET) [Suspect]
     Indication: PRODUCT USED FOR UNKNOWN INDICATION
     Route: 048

REACTIONS (4)
  - SWELLING FACE [None]
  - SKIN DISORDER [None]
  - HYPERSENSITIVITY [None]
  - HALLUCINATION [None]
